FAERS Safety Report 13492162 (Version 1)
Quarter: 2017Q2

REPORT INFORMATION
  Report Type: Report from Study
  Country: US (occurrence: US)
  Receive Date: 20170427
  Receipt Date: 20170427
  Transmission Date: 20170830
  Serious: Yes (Hospitalization)
  Sender: FDA-Public Use
  Company Number: US-BAYER-2017-060147

PATIENT
  Age: 47 Year
  Sex: Female

DRUGS (3)
  1. ADEMPAS [Suspect]
     Active Substance: RIOCIGUAT
     Indication: PULMONARY ARTERIAL HYPERTENSION
     Dosage: 0.5 MG, TID
     Route: 048
     Dates: start: 20170310
  2. ADEMPAS [Suspect]
     Active Substance: RIOCIGUAT
     Indication: PULMONARY ARTERIAL HYPERTENSION
     Dosage: 0.5 MG, TID
     Route: 048
     Dates: start: 20170214
  3. VELETRI [Concomitant]
     Active Substance: EPOPROSTENOL
     Dosage: UNK

REACTIONS (4)
  - Pericardial effusion [Not Recovered/Not Resolved]
  - Hospitalisation [None]
  - Swelling [None]
  - Dyspnoea [None]

NARRATIVE: CASE EVENT DATE: 20170416
